FAERS Safety Report 4778028-1 (Version None)
Quarter: 2005Q3

REPORT INFORMATION
  Report Type: 
  Country: None (occurrence: None)
  Receive Date: 20050923
  Receipt Date: 20050914
  Transmission Date: 20060218
  Serious: Yes (Hospitalization)
  Sender: FDA-Public Use
  Company Number: 2005AP000713

PATIENT
  Age: 47 Year
  Sex: Female

DRUGS (10)
  1. PAROXETINE HCL [Suspect]
     Indication: DEPRESSION
     Dosage: 20 MG BID PO
     Route: 048
  2. REMERON [Concomitant]
  3. ATIVAN [Concomitant]
  4. ENALAPRIL [Concomitant]
  5. METOPROLOL [Concomitant]
  6. PLAQUENIL [Concomitant]
  7. HUMIRA [Concomitant]
  8. NEXIUM [Concomitant]
  9. IMODIUM [Concomitant]
  10. LOMOTIL [Concomitant]

REACTIONS (5)
  - ABDOMINAL DISCOMFORT [None]
  - ABDOMINAL PAIN [None]
  - AGITATION [None]
  - DEHYDRATION [None]
  - DIARRHOEA [None]
